FAERS Safety Report 7879309-5 (Version None)
Quarter: 2011Q4

REPORT INFORMATION
  Report Type: 
  Country: None (occurrence: None)
  Receive Date: 20111101
  Receipt Date: 20111028
  Transmission Date: 20120403
  Serious: Yes (Other)
  Sender: FDA-Public Use
  Company Number: SE-PFIZER INC-2011263552

PATIENT
  Age: 53 Year
  Sex: Female

DRUGS (2)
  1. VARENICLINE TARTRATE [Suspect]
     Dosage: 1TABLET DAILY
     Dates: end: 20111024
  2. VARENICLINE TARTRATE [Suspect]
     Indication: SMOKING CESSATION THERAPY
     Dosage: 2 TABLETS DAILY
     Route: 048
     Dates: start: 20110923

REACTIONS (5)
  - GENITAL INFECTION FUNGAL [None]
  - STOMATITIS [None]
  - BREAST DISCOMFORT [None]
  - AGGRESSION [None]
  - COUGH [None]
